FAERS Safety Report 7760488-5 (Version None)
Quarter: 2011Q3

REPORT INFORMATION
  Report Type: 
  Country: None (occurrence: None)
  Receive Date: 20110919
  Receipt Date: 20110908
  Transmission Date: 20111222
  Serious: Yes (Other)
  Sender: FDA-Public Use
  Company Number: US-BAYER-2011-062463

PATIENT
  Age: 84 Year
  Sex: Female
  Weight: 175 kg

DRUGS (3)
  1. MAGNEVIST [Suspect]
     Indication: NUCLEAR MAGNETIC RESONANCE IMAGING BRAIN
     Dosage: 15 ML, ONCE
     Route: 042
     Dates: start: 20110715, end: 20110715
  2. TOPROL-XL [Concomitant]
     Dosage: 100 MG, QD
  3. COZAAR [Concomitant]
     Dosage: 100 MG, QD

REACTIONS (8)
  - OCULAR HYPERAEMIA [None]
  - BLOOD PRESSURE INCREASED [None]
  - EYELID PTOSIS [None]
  - THROAT IRRITATION [None]
  - EYELID OEDEMA [None]
  - NAUSEA [None]
  - VOMITING [None]
  - RETCHING [None]
